FAERS Safety Report 9302912 (Version 1)
Quarter: 2013Q2

REPORT INFORMATION
  Report Type: Spontaneous
  Country: CA (occurrence: CA)
  Receive Date: 20130522
  Receipt Date: 20130522
  Transmission Date: 20140414
  Serious: Yes (Other)
  Sender: FDA-Public Use
  Company Number: CA-JNJFOC-20130513730

PATIENT
  Age: 74 Year
  Sex: Female
  Weight: 78.93 kg

DRUGS (7)
  1. SIMPONI [Suspect]
     Indication: PRODUCT USED FOR UNKNOWN INDICATION
     Route: 058
  2. COVERSYL PLUS [Concomitant]
     Route: 065
  3. CRESTOR [Concomitant]
     Route: 065
  4. DICLOFENAC [Concomitant]
     Route: 065
  5. ELTROXIN [Concomitant]
     Route: 065
  6. PARIET [Concomitant]
     Route: 065
  7. ZOLOFT [Concomitant]
     Route: 065

REACTIONS (1)
  - Squamous cell carcinoma of skin [Unknown]
